FAERS Safety Report 23398124 (Version 1)
Quarter: 2024Q1

REPORT INFORMATION
  Report Type: Spontaneous
  Country: US (occurrence: US)
  Receive Date: 20240112
  Receipt Date: 20240112
  Transmission Date: 20240410
  Serious: Yes (Hospitalization)
  Sender: FDA-Public Use
  Company Number: US-PFIZER INC-PV202400001881

PATIENT
  Age: 48 Year
  Sex: Female

DRUGS (4)
  1. CEFEPIME HYDROCHLORIDE [Suspect]
     Active Substance: CEFEPIME HYDROCHLORIDE
     Indication: Urinary tract infection
     Dosage: 2 G, 2X/DAY
     Dates: start: 2023, end: 2023
  2. CEFEPIME HYDROCHLORIDE [Suspect]
     Active Substance: CEFEPIME HYDROCHLORIDE
     Indication: Pulmonary embolism
  3. VANCOMYCIN [Concomitant]
     Active Substance: VANCOMYCIN
     Indication: Urinary tract infection
     Dosage: UNK
     Dates: start: 2023, end: 2023
  4. VANCOMYCIN [Concomitant]
     Active Substance: VANCOMYCIN
     Indication: Pulmonary embolism

REACTIONS (1)
  - Cotard^s syndrome [Recovered/Resolved]

NARRATIVE: CASE EVENT DATE: 20230101
